FAERS Safety Report 10681145 (Version 1)
Quarter: 2014Q4

REPORT INFORMATION
  Report Type: Spontaneous
  Country: PL (occurrence: PL)
  Receive Date: 20141229
  Receipt Date: 20141229
  Transmission Date: 20150529
  Serious: Yes (Other)
  Sender: FDA-Public Use
  Company Number: PL-ROCHE-1514270

PATIENT
  Age: 71 Year
  Sex: Female

DRUGS (3)
  1. BEVACIZUMAB [Suspect]
     Active Substance: BEVACIZUMAB
     Indication: RENAL CANCER METASTATIC
     Route: 065
  2. EVEROLIMUS [Suspect]
     Active Substance: EVEROLIMUS
     Indication: RENAL CANCER METASTATIC
     Route: 065
  3. INTERFERON ALFA-2A [Suspect]
     Active Substance: INTERFERON ALFA-2A
     Indication: RENAL CANCER METASTATIC
     Route: 065

REACTIONS (7)
  - Cardiotoxicity [Unknown]
  - Memory impairment [Unknown]
  - Social avoidant behaviour [Unknown]
  - Dementia [Unknown]
  - Haematotoxicity [Unknown]
  - Paranoid personality disorder [Unknown]
  - Emotional disorder [Unknown]
